FAERS Safety Report 19176260 (Version 1)
Quarter: 2021Q2

REPORT INFORMATION
  Report Type: Spontaneous
  Country: US (occurrence: US)
  Receive Date: 20210423
  Receipt Date: 20210423
  Transmission Date: 20210717
  Serious: Yes (Other)
  Sender: FDA-Public Use
  Company Number: US-JNJFOC-20210427499

PATIENT
  Age: 40 Year
  Sex: Female
  Weight: 89.81 kg

DRUGS (3)
  1. JANSSEN COVID?19 VACCINE [Suspect]
     Active Substance: AD26.COV2.S
     Indication: IMMUNISATION
     Dosage: VACCINATED TO LEFT DELTOID IN ARM
     Route: 065
     Dates: start: 20210317, end: 20210317
  2. ORTHO TRI CYCLEN [Suspect]
     Active Substance: ETHINYL ESTRADIOL\NORGESTIMATE
     Indication: ORAL CONTRACEPTION
     Route: 048
  3. SYMBICORT [Concomitant]
     Active Substance: BUDESONIDE\FORMOTEROL FUMARATE DIHYDRATE
     Indication: ASTHMA PROPHYLAXIS
     Dosage: 106?4.5 MCG/ACT 2 PUFFS

REACTIONS (3)
  - Oedema [Unknown]
  - Varicose vein [Unknown]
  - Thrombophlebitis superficial [Recovering/Resolving]

NARRATIVE: CASE EVENT DATE: 20210330
